FAERS Safety Report 13189688 (Version 2)
Quarter: 2017Q1

REPORT INFORMATION
  Report Type: Spontaneous
  Country: US (occurrence: US)
  Receive Date: 20170206
  Receipt Date: 20170206
  Transmission Date: 20170428
  Serious: No
  Sender: FDA-Public Use
  Company Number: US-BAYER-2017-021128

PATIENT
  Age: 77 Year
  Sex: Male
  Weight: 88.44 kg

DRUGS (3)
  1. ASPIRIN. [Suspect]
     Active Substance: ASPIRIN
  2. VITAMIN D [Concomitant]
     Active Substance: CHOLECALCIFEROL
  3. CLARITIN-D 24 HOUR [Suspect]
     Active Substance: LORATADINE\PSEUDOEPHEDRINE SULFATE
     Dosage: 1 DF, BID
     Route: 048
     Dates: start: 20170201

REACTIONS (1)
  - Insomnia [Unknown]

NARRATIVE: CASE EVENT DATE: 20170201
